FAERS Safety Report 4401919-8 (Version None)
Quarter: 2004Q3

REPORT INFORMATION
  Report Type: 
  Country: None (occurrence: None)
  Receive Date: 20040714
  Receipt Date: 20040623
  Transmission Date: 20050211
  Serious: Yes (Other)
  Sender: FDA-Public Use
  Company Number: USA040362040

PATIENT
  Age: 76 Year
  Sex: Female

DRUGS (2)
  1. VANCOMYCIN [Suspect]
     Indication: BACTERAEMIA
     Dosage: 500 MG OTHER
     Route: 050
     Dates: start: 20040220, end: 20040402
  2. VANCOMYCIN [Suspect]
     Indication: ENDOCARDITIS
     Dosage: 500 MG OTHER
     Route: 050
     Dates: start: 20040220, end: 20040402

REACTIONS (5)
  - AMNESIA [None]
  - BLISTER [None]
  - BLOOD CREATININE INCREASED [None]
  - CONFUSIONAL STATE [None]
  - SKIN ULCER [None]
